FAERS Safety Report 6282412-7 (Version None)
Quarter: 2009Q3

REPORT INFORMATION
  Report Type: 
  Country: None (occurrence: None)
  Receive Date: 20090724
  Receipt Date: 20090623
  Transmission Date: 20100115
  Serious: No
  Sender: FDA-Public Use
  Company Number: US-BAYER-200924957NA

PATIENT
  Age: 37 Year
  Sex: Female

DRUGS (2)
  1. MIRENA [Suspect]
     Indication: CONTRACEPTION
     Dosage: CONTINUOUS DELIVERY
     Route: 015
     Dates: start: 20090610, end: 20090610
  2. MIRENA [Suspect]
     Route: 015
     Dates: start: 20090610, end: 20090610

REACTIONS (2)
  - COMPLICATION OF DEVICE INSERTION [None]
  - IUCD COMPLICATION [None]
